FAERS Safety Report 23991879 (Version 1)
Quarter: 2024Q2

REPORT INFORMATION
  Report Type: Report from Study
  Country: CN (occurrence: CN)
  Receive Date: 20240619
  Receipt Date: 20240619
  Transmission Date: 20240716
  Serious: Yes (Other)
  Sender: FDA-Public Use
  Company Number: CN-JNJFOC-20240634291

PATIENT

DRUGS (2)
  1. RISPERDAL [Suspect]
     Active Substance: RISPERIDONE
     Indication: Schizophrenia
     Dosage: INITIAL DOSE OF 1MG/D, AND THE DOSE WAS GRADUALLY INCREASED IN COMBINATION WITH THE PATIENT^S CONDIT
     Route: 048
  2. ARIPIPRAZOLE [Suspect]
     Active Substance: ARIPIPRAZOLE
     Indication: Schizophrenia
     Dosage: GROUP CO., LTD.) WERE TAKEN ORALLY WITH AN INITIAL DOSE OF 5MG/D, AND AFTER 7 DAYS OF CONSECUTIVE TR
     Route: 048

REACTIONS (13)
  - Electrocardiogram QT interval abnormal [Unknown]
  - Hepatic function abnormal [Unknown]
  - Dizziness [Unknown]
  - Somnolence [Unknown]
  - Weight increased [Unknown]
  - Dry mouth [Unknown]
  - Nausea [Unknown]
  - Insomnia [Unknown]
  - Extrapyramidal disorder [Unknown]
  - Vomiting [Unknown]
  - Therapeutic response unexpected [Unknown]
  - Drug ineffective [Unknown]
  - Off label use [Unknown]
